FAERS Safety Report 18870785 (Version 2)
Quarter: 2021Q1

REPORT INFORMATION
  Report Type: Report from Study
  Country: None (occurrence: AU)
  Receive Date: 20210209
  Receipt Date: 20210218
  Transmission Date: 20210420
  Serious: Yes (Hospitalization)
  Sender: FDA-Public Use
  Company Number: AU-ABBVIE-21K-008-3765841-00

PATIENT
  Sex: Male

DRUGS (2)
  1. DUODOPA [Suspect]
     Active Substance: CARBIDOPA\LEVODOPA
     Indication: PARKINSON^S DISEASE
     Dosage: GEL CASSETTE
     Route: 050
     Dates: start: 20180705
  2. DUODOPA [Suspect]
     Active Substance: CARBIDOPA\LEVODOPA

REACTIONS (3)
  - Blood pressure decreased [Unknown]
  - Fall [Unknown]
  - Dizziness [Unknown]
